FAERS Safety Report 8237368-4 (Version None)
Quarter: 2012Q1

REPORT INFORMATION
  Report Type: 
  Country: None (occurrence: None)
  Receive Date: 20120327
  Receipt Date: 20120321
  Transmission Date: 20120608
  Serious: Yes (Hospitalization, Other)
  Sender: FDA-Public Use
  Company Number: SE-PFIZER INC-2012073059

PATIENT
  Age: 78 Year
  Sex: Female

DRUGS (9)
  1. ALVEDON [Concomitant]
     Dosage: UNK
  2. NEURONTIN [Suspect]
     Dosage: UNK
  3. SPIRIVA [Concomitant]
     Dosage: UNK
  4. SIMVASTATIN [Concomitant]
     Dosage: UNK
  5. LEVOTHYROXINE SODIUM [Concomitant]
     Dosage: UNK
  6. ASPIRIN [Concomitant]
     Dosage: UNK
  7. SPIRONOLACTONE [Concomitant]
     Dosage: UNK
  8. OXYCONTIN [Suspect]
     Dosage: UNK
     Dates: end: 20120119
  9. SYMBICORT [Concomitant]
     Dosage: UNK

REACTIONS (5)
  - DISORIENTATION [None]
  - DIARRHOEA [None]
  - VOMITING [None]
  - CLOSTRIDIUM TEST POSITIVE [None]
  - CONFUSIONAL STATE [None]
